FAERS Safety Report 8250539-6 (Version None)
Quarter: 2012Q2

REPORT INFORMATION
  Report Type: 
  Country: None (occurrence: None)
  Receive Date: 20120402
  Receipt Date: 20120321
  Transmission Date: 20120825
  Serious: Yes (Death)
  Sender: FDA-Public Use
  Company Number: JP-PFIZER INC-2011294196

PATIENT
  Age: 52 Year
  Sex: Male
  Weight: 46 kg

DRUGS (4)
  1. KYTRIL [Concomitant]
     Dosage: UNK
     Dates: start: 20110322, end: 20110322
  2. VECTIBIX [Suspect]
     Indication: COLON CANCER
     Dosage: 275 MG/BODY, 1X/DAY
     Route: 041
     Dates: start: 20110322, end: 20110322
  3. IRINOTECAN HCL [Suspect]
     Indication: COLON CANCER
     Dosage: 225 MG/BODY (161.9 MG/M2), 1X/DAY
     Route: 041
     Dates: start: 20110322, end: 20110322
  4. DECADRON [Concomitant]
     Dosage: UNK
     Dates: start: 20110322, end: 20110322

REACTIONS (3)
  - CHILLS [None]
  - INFECTIOUS PERITONITIS [None]
  - INTESTINAL PERFORATION [None]
